FAERS Safety Report 6026471-5 (Version None)
Quarter: 2009Q1

REPORT INFORMATION
  Report Type: 
  Country: None (occurrence: None)
  Receive Date: 20090102
  Receipt Date: 20081222
  Transmission Date: 20090719
  Serious: Yes (Hospitalization)
  Sender: FDA-Public Use
  Company Number: FR-PFIZER INC-2008159752

PATIENT

DRUGS (6)
  1. ALDACTONE [Suspect]
     Indication: ASCITES
     Dosage: FREQUENCY: EVERY DAY;
     Route: 048
     Dates: start: 20071126, end: 20080405
  2. LASILIX [Suspect]
     Indication: ASCITES
     Dosage: 40 MG, 1X/DAY
     Route: 048
     Dates: start: 20080314
  3. NORFLOXACIN [Suspect]
     Indication: PERITONEAL INFECTION
     Dosage: 400 MG, 1X/DAY
     Route: 048
     Dates: start: 20080314
  4. FOLIC ACID [Concomitant]
     Dosage: UNK
     Route: 048
     Dates: start: 20080314
  5. TINZAPARIN SODIUM [Concomitant]
     Dosage: UNK
     Route: 058
     Dates: start: 20080330
  6. INSULIN LISPRO [Concomitant]
     Dosage: UNK
     Route: 058
     Dates: start: 20070625

REACTIONS (10)
  - BLOOD CALCIUM INCREASED [None]
  - BLOOD FOLATE DECREASED [None]
  - BLOOD TRIGLYCERIDES INCREASED [None]
  - CONSTIPATION [None]
  - HAEMOPTYSIS [None]
  - HEPATIC CIRRHOSIS [None]
  - LUNG SQUAMOUS CELL CARCINOMA STAGE I [None]
  - PANCREATITIS ACUTE [None]
  - PERITONEAL INFECTION [None]
  - PORTAL VEIN THROMBOSIS [None]
